FAERS Safety Report 10959875 (Version 2)
Quarter: 2015Q2

REPORT INFORMATION
  Report Type: Spontaneous
  Country: US (occurrence: US)
  Receive Date: 20150327
  Receipt Date: 20150408
  Transmission Date: 20150821
  Serious: Yes (Hospitalization)
  Sender: FDA-Public Use
  Company Number: US-009507513-1503USA011856

PATIENT
  Age: 27 Year
  Sex: Female
  Weight: 86.62 kg

DRUGS (1)
  1. NUVARING [Suspect]
     Active Substance: ETHINYL ESTRADIOL\ETONOGESTREL
     Indication: CONTRACEPTION
     Dosage: UNKNOWN
     Route: 067
     Dates: start: 20150316, end: 20150319

REACTIONS (7)
  - Feeding disorder [Unknown]
  - Fatigue [Unknown]
  - Irritability [Unknown]
  - Syncope [Unknown]
  - Malaise [Unknown]
  - Abdominal pain [Unknown]
  - Nausea [Unknown]

NARRATIVE: CASE EVENT DATE: 20150317
